FAERS Safety Report 23658732 (Version 2)
Quarter: 2024Q2

REPORT INFORMATION
  Report Type: Spontaneous
  Country: JP (occurrence: JP)
  Receive Date: 20240321
  Receipt Date: 20240503
  Transmission Date: 20240716
  Serious: Yes (Death, Other)
  Sender: FDA-Public Use
  Company Number: JP-GENMAB-2024-00638AA

PATIENT
  Age: 67 Year
  Sex: Male
  Weight: 57 kg

DRUGS (7)
  1. EPKINLY [Suspect]
     Active Substance: EPCORITAMAB-BYSP
     Indication: Diffuse large B-cell lymphoma refractory
     Dosage: 0.16 MILLIGRAM, SINGLE
     Route: 058
     Dates: start: 20240227, end: 20240227
  2. EPKINLY [Suspect]
     Active Substance: EPCORITAMAB-BYSP
     Dosage: 0.8 MILLIGRAM, SINGLE
     Route: 058
     Dates: start: 20240305, end: 20240305
  3. PREDNISOLONE [Concomitant]
     Active Substance: PREDNISOLONE
     Indication: Prophylaxis
     Dosage: UNK, DAY 1, DAY 2, AND DAY 3 OF ADMINISTRATION OF EPKINLY SUBCUTANEOUS INJECTION (EPCORITAMAB) (GENE
     Dates: start: 20240227, end: 20240307
  4. POLARAMINE [Concomitant]
     Active Substance: DEXCHLORPHENIRAMINE MALEATE
     Indication: Prophylaxis
     Dosage: UNK, DAY 1 OF ADMINISTRATION OF EPKINLY SUBCUTANEOUS INJECTION (EPCORITAMAB) (GENETICAL RECOMBINATIO
     Dates: start: 20240227, end: 20240305
  5. FAMOTIDINE [Concomitant]
     Active Substance: FAMOTIDINE
     Indication: Prophylaxis
     Dosage: UNK, DAY 1 OF ADMINISTRATION OF EPKINLY SUBCUTANEOUS INJECTION (EPCORITAMAB) (GENETICAL RECOMBINATIO
     Dates: start: 20240227, end: 20240305
  6. CALONAL [Concomitant]
     Active Substance: ACETAMINOPHEN
     Indication: Prophylaxis
     Dosage: UNK, DAY 1 OF ADMINISTRATION OF EPKINLY SUBCUTANEOUS INJECTION (EPCORITAMAB) (GENETICAL RECOMBINATIO
     Dates: start: 20240227, end: 20240305
  7. FENTANYL [Concomitant]
     Active Substance: FENTANYL\FENTANYL CITRATE
     Indication: Cancer pain
     Dosage: 120 MICROGRAM/DAY
     Route: 042
     Dates: start: 20240304, end: 20240312

REACTIONS (4)
  - Cytokine release syndrome [Recovered/Resolved]
  - Febrile neutropenia [Unknown]
  - Diffuse large B-cell lymphoma refractory [Fatal]
  - Blood pressure increased [Unknown]

NARRATIVE: CASE EVENT DATE: 20240101
